FAERS Safety Report 25941587 (Version 2)
Quarter: 2025Q4

REPORT INFORMATION
  Report Type: Report from Study
  Country: US (occurrence: US)
  Receive Date: 20251020
  Receipt Date: 20251117
  Transmission Date: 20260117
  Serious: No
  Sender: MALLINCKRODT
  Company Number: US-MALLINCKRODT-MNK202506449

PATIENT
  Sex: Female

DRUGS (1)
  1. CORTICOTROPIN [Suspect]
     Active Substance: CORTICOTROPIN
     Indication: Product used for unknown indication
     Dosage: UNKNOWN

REACTIONS (6)
  - Illness [Unknown]
  - Weight decreased [Unknown]
  - Dry eye [Unknown]
  - Eye inflammation [Unknown]
  - Gastroenteritis bacterial [Not Recovered/Not Resolved]
  - Cortisol increased [Unknown]
